FAERS Safety Report 23581089 (Version 1)
Quarter: 2024Q1

REPORT INFORMATION
  Report Type: Spontaneous
  Country: CA (occurrence: CA)
  Receive Date: 20240229
  Receipt Date: 20240229
  Transmission Date: 20240410
  Serious: Yes (Other)
  Sender: FDA-Public Use
  Company Number: CA-TEVA-VS-3161347

PATIENT
  Age: 69 Year
  Sex: Male

DRUGS (2)
  1. OXYBUTYNIN [Suspect]
     Active Substance: OXYBUTYNIN\OXYBUTYNIN CHLORIDE
     Route: 065
  2. TOVIAZ [Suspect]
     Active Substance: FESOTERODINE FUMARATE
     Dosage: DOSAGE FORM - TABLET (EXTENDED- RELEASE)
     Route: 065

REACTIONS (3)
  - Catheter placement [Unknown]
  - Urinary retention [Unknown]
  - Nervous system disorder [Unknown]
